FAERS Safety Report 23292866 (Version 1)
Quarter: 2023Q4

REPORT INFORMATION
  Report Type: Spontaneous
  Country: US (occurrence: US)
  Receive Date: 20231213
  Receipt Date: 20231213
  Transmission Date: 20240110
  Serious: No
  Sender: FDA-Public Use
  Company Number: US-BAYER-2023A177620

PATIENT
  Age: 78 Year
  Sex: Female

DRUGS (1)
  1. ALEVE BACK AND MUSCLE PAIN [Suspect]
     Active Substance: NAPROXEN SODIUM
     Dosage: 1 DF, QD
     Route: 048
     Dates: start: 20231206, end: 20231206

REACTIONS (2)
  - Palpitations [Recovered/Resolved]
  - Insomnia [None]

NARRATIVE: CASE EVENT DATE: 20231206
